FAERS Safety Report 7171221-2 (Version None)
Quarter: 2010Q4

REPORT INFORMATION
  Report Type: 
  Country: None (occurrence: None)
  Receive Date: 20101217
  Receipt Date: 20101207
  Transmission Date: 20110411
  Serious: Yes (Disabling)
  Sender: FDA-Public Use
  Company Number: RO-GENZYME-CERZ-1001686

PATIENT

DRUGS (1)
  1. CEREZYME [Suspect]
     Indication: GAUCHER'S DISEASE
     Dosage: 100 U/KG, Q2W
     Route: 042
     Dates: start: 20100401

REACTIONS (1)
  - FEMUR FRACTURE [None]
